FAERS Safety Report 16750394 (Version 1)
Quarter: 2019Q3

REPORT INFORMATION
  Report Type: Spontaneous
  Country: CN (occurrence: CN)
  Receive Date: 20190828
  Receipt Date: 20190828
  Transmission Date: 20191005
  Serious: Yes (Death)
  Sender: FDA-Public Use
  Company Number: CN-AMNEAL PHARMACEUTICALS-2019AMN00936

PATIENT

DRUGS (4)
  1. PREGASPARGASE [Suspect]
     Active Substance: PEGASPARGASE
     Indication: ANGIOCENTRIC LYMPHOMA
     Dosage: UNK (2000U/M2, D1)
     Route: 030
  2. DEXAMETHASONE. [Suspect]
     Active Substance: DEXAMETHASONE
     Indication: ANGIOCENTRIC LYMPHOMA
     Dosage: 40 MG/D, D1-4
     Route: 042
  3. LEVOLEUCOVORIN. [Suspect]
     Active Substance: LEVOLEUCOVORIN
     Indication: ANGIOCENTRIC LYMPHOMA
     Dosage: 30 MG
     Route: 042
  4. METHOTREXATE. [Suspect]
     Active Substance: METHOTREXATE
     Indication: ANGIOCENTRIC LYMPHOMA
     Dosage: 3000 MG/M2 (CIV 6 HOUR D1)
     Route: 065

REACTIONS (1)
  - Sepsis [Fatal]
